FAERS Safety Report 8248165-8 (Version None)
Quarter: 2012Q1

REPORT INFORMATION
  Report Type: 
  Country: None (occurrence: None)
  Receive Date: 20120330
  Receipt Date: 20120327
  Transmission Date: 20120608
  Serious: Yes (Hospitalization, Other)
  Sender: FDA-Public Use
  Company Number: US-BAYER-2011-040443

PATIENT
  Age: 40 Year
  Sex: Female
  Weight: 76.19 kg

DRUGS (11)
  1. IBUPROFEN (ADVIL) [Concomitant]
     Indication: PAIN
     Dosage: UNK UNK, PRN
     Route: 048
  2. IMITREX [Concomitant]
     Indication: MIGRAINE
     Dosage: UNK UNK, QD
     Route: 048
     Dates: start: 20010701, end: 20100101
  3. ACIPHEX [Concomitant]
     Indication: GASTRIC PH DECREASED
     Dosage: 20 MG, QD
     Route: 048
     Dates: start: 20010901, end: 20091201
  4. BENADRYL [Concomitant]
     Dosage: UNK UNK, PRN
     Route: 048
     Dates: start: 20060512
  5. AMBIEN [Concomitant]
     Indication: INSOMNIA
     Dosage: 10 MG, HS
     Route: 048
     Dates: start: 20020701, end: 20100101
  6. ASCORBIC ACID [Concomitant]
     Indication: BLOOD IRON DECREASED
     Dosage: UNK UNK, QD
     Route: 048
  7. ULTRACET [Concomitant]
     Indication: PAIN
     Dosage: UNK UNK, QD
     Route: 048
     Dates: start: 20040801
  8. PSEUDOEPHEDRINE HCL [Concomitant]
     Indication: MULTIPLE ALLERGIES
     Dosage: UNK UNK, BID
     Route: 048
  9. MULTI-VITAMINS [Concomitant]
     Indication: IMMUNE SYSTEM DISORDER
     Dosage: UNK UNK, QD
     Route: 048
     Dates: start: 19930101
  10. YASMIN [Suspect]
     Indication: ORAL CONTRACEPTION
     Dosage: UNK
     Dates: start: 20050705, end: 20060514
  11. CLARITIN [Concomitant]
     Indication: MULTIPLE ALLERGIES
     Dosage: UNK UNK, QD
     Route: 048

REACTIONS (12)
  - DYSPNOEA EXERTIONAL [None]
  - PAIN IN EXTREMITY [None]
  - EMOTIONAL DISTRESS [None]
  - RESPIRATION ABNORMAL [None]
  - GENERAL PHYSICAL HEALTH DETERIORATION [None]
  - PULMONARY EMBOLISM [None]
  - CHEST PAIN [None]
  - INJURY [None]
  - OEDEMA PERIPHERAL [None]
  - ANXIETY [None]
  - DEEP VEIN THROMBOSIS [None]
  - PAIN [None]
